FAERS Safety Report 6161434-0 (Version None)
Quarter: 2009Q2

REPORT INFORMATION
  Report Type: 
  Country: None (occurrence: None)
  Receive Date: 20090417
  Receipt Date: 20090417
  Transmission Date: 20091009
  Serious: Yes (Other)
  Sender: FDA-Public Use
  Company Number: None

PATIENT
  Sex: Female
  Weight: 79.3795 kg

DRUGS (3)
  1. PIROXICAM [Suspect]
     Indication: JOINT SWELLING
     Dosage: 1 CAPSULE 1 PER DAY
     Dates: start: 20090223, end: 20090225
  2. PIROXICAM [Suspect]
     Indication: SWELLING
     Dosage: 1 CAPSULE 1 PER DAY
     Dates: start: 20090223, end: 20090225
  3. PREDNISONE [Suspect]
     Indication: PRURITUS
     Dosage: 3 X PER DAY
     Dates: start: 20090302, end: 20090304

REACTIONS (13)
  - BLISTER [None]
  - BONE PAIN [None]
  - EYE PAIN [None]
  - EYE PRURITUS [None]
  - EYE SWELLING [None]
  - JOINT SWELLING [None]
  - NECK PAIN [None]
  - OROPHARYNGEAL PAIN [None]
  - PHARYNGEAL OEDEMA [None]
  - PRURITUS [None]
  - RASH ERYTHEMATOUS [None]
  - SWELLING [None]
  - UNEVALUABLE EVENT [None]
